FAERS Safety Report 7146598-4 (Version None)
Quarter: 2010Q4

REPORT INFORMATION
  Report Type: 
  Country: None (occurrence: None)
  Receive Date: 20101208
  Receipt Date: 20101116
  Transmission Date: 20110411
  Serious: No
  Sender: FDA-Public Use
  Company Number: US-PFIZER INC-2010153477

PATIENT
  Age: 24 Year
  Sex: Female
  Weight: 61.224 kg

DRUGS (2)
  1. ADVIL [Suspect]
     Indication: HEADACHE
     Dosage: 1 TABLET
     Route: 048
     Dates: start: 20101001
  2. ADVIL [Suspect]
     Indication: DYSMENORRHOEA

REACTIONS (1)
  - ABDOMINAL PAIN UPPER [None]
